FAERS Safety Report 4457891-8 (Version None)
Quarter: 2004Q3

REPORT INFORMATION
  Report Type: 
  Country: None (occurrence: None)
  Receive Date: 20040924
  Receipt Date: 20040916
  Transmission Date: 20050211
  Serious: Yes (Hospitalization)
  Sender: FDA-Public Use
  Company Number: AU-JNJFOC-20040905215

PATIENT
  Age: 27 Year
  Sex: Male

DRUGS (3)
  1. RISPERDAL CONSTA [Suspect]
     Indication: SCHIZOPHRENIA
     Dosage: DOSE TO BE INCREASED TO 37.5 MG AT NEXT ADMINISTRATION
     Route: 030
  2. DIAZEPAM [Concomitant]
  3. PAROXETINE HCL [Concomitant]

REACTIONS (1)
  - AGGRESSION [None]
